FAERS Safety Report 19388599 (Version 1)
Quarter: 2021Q2

REPORT INFORMATION
  Report Type: Spontaneous
  Country: US (occurrence: US)
  Receive Date: 20210607
  Receipt Date: 20210607
  Transmission Date: 20210717
  Serious: Yes (Other)
  Sender: FDA-Public Use
  Company Number: None

PATIENT
  Age: 54 Year
  Sex: Female
  Weight: 80.1 kg

DRUGS (6)
  1. KRIL OIL [Concomitant]
  2. PANTROPRAZOLE [Concomitant]
  3. MENOPAUSE SUPPORT [Concomitant]
  4. VIVITROL [Suspect]
     Active Substance: NALTREXONE
     Indication: ALCOHOLISM
     Dosage: OTHER FREQUENCY:1 TIME;?
     Route: 030
     Dates: start: 20210331, end: 20210331
  5. TERMURIC [Concomitant]
  6. SERTRALINE [Concomitant]
     Active Substance: SERTRALINE HYDROCHLORIDE

REACTIONS (3)
  - Injection site bruising [None]
  - Contusion [None]
  - Injection site mass [None]

NARRATIVE: CASE EVENT DATE: 20210331
